FAERS Safety Report 16527447 (Version 2)
Quarter: 2019Q3

REPORT INFORMATION
  Report Type: Spontaneous
  Country: CZ (occurrence: CZ)
  Receive Date: 20190704
  Receipt Date: 20190711
  Transmission Date: 20191004
  Serious: Yes (Other)
  Sender: FDA-Public Use
  Company Number: CZ-SA-2019SA178632

PATIENT
  Age: 30 Year
  Sex: Male

DRUGS (3)
  1. BENEFIX [Concomitant]
     Active Substance: COAGULATION FACTOR IX RECOMBINANT HUMAN\ISOPROPYL ALCOHOL
     Dosage: 24 IU/KG, 208,000 IU/YEAR (104 INJECTIONS)
     Dates: start: 2005
  2. ALPROLIX [Suspect]
     Active Substance: EFTRENONACOG ALFA
  3. BENEFIX [Concomitant]
     Active Substance: COAGULATION FACTOR IX RECOMBINANT HUMAN\ISOPROPYL ALCOHOL
     Dosage: 200 IU, BIW
     Dates: start: 2005

REACTIONS (1)
  - Haemorrhage [Unknown]
